FAERS Safety Report 6521682-4 (Version None)
Quarter: 2009Q4

REPORT INFORMATION
  Report Type: 
  Country: None (occurrence: None)
  Receive Date: 20091224
  Receipt Date: 20091215
  Transmission Date: 20100525
  Serious: Yes (Life-Threatening, Hospitalization, Other)
  Sender: FDA-Public Use
  Company Number: 2009US-29188

PATIENT
  Age: 49 Year
  Sex: Male

DRUGS (4)
  1. DIAZEPAM [Suspect]
     Dosage: 50 X 5 MG
  2. TRAMADOL HYDROCHLORIDE (TRAMADOL) PROLONGED-RELEASE [Suspect]
     Indication: DRUG USE FOR UNKNOWN INDICATION
     Dosage: 15 X 200 MG
  3. MORPHINE SULFATE [Suspect]
     Indication: DRUG USE FOR UNKNOWN INDICATION
     Dosage: 20 X 30 MG
  4. VERAPAMIL [Suspect]
     Indication: DRUG USE FOR UNKNOWN INDICATION

REACTIONS (15)
  - ASTHENIA [None]
  - ATAXIA [None]
  - BLOOD GLUCOSE INCREASED [None]
  - BLOOD MAGNESIUM DECREASED [None]
  - BLOOD POTASSIUM DECREASED [None]
  - CARDIAC INDEX INCREASED [None]
  - CARDIOTOXICITY [None]
  - DISORIENTATION [None]
  - DYSARTHRIA [None]
  - HAEMODYNAMIC INSTABILITY [None]
  - HYPOTENSION [None]
  - MULTIPLE DRUG OVERDOSE INTENTIONAL [None]
  - NODAL RHYTHM [None]
  - SOMNOLENCE [None]
  - VASCULAR RESISTANCE SYSTEMIC DECREASED [None]
